FAERS Safety Report 12124012 (Version 1)
Quarter: 2016Q1

REPORT INFORMATION
  Report Type: Spontaneous
  Country: US (occurrence: US)
  Receive Date: 20160228
  Receipt Date: 20160228
  Transmission Date: 20160526
  Serious: No
  Sender: FDA-Public Use
  Company Number: GXBR2015US002584

PATIENT
  Sex: Female

DRUGS (1)
  1. CICLOPIROX. [Suspect]
     Active Substance: CICLOPIROX
     Indication: SEBORRHOEIC DERMATITIS
     Dosage: 1 %, QD
     Route: 061
     Dates: start: 20150818, end: 20151115

REACTIONS (2)
  - Hair texture abnormal [Unknown]
  - Alopecia [Unknown]
